FAERS Safety Report 9894443 (Version 1)
Quarter: 2014Q1

REPORT INFORMATION
  Report Type: Report from Study
  Country: FR (occurrence: FR)
  Receive Date: 20140213
  Receipt Date: 20140213
  Transmission Date: 20141002
  Serious: Yes (Other)
  Sender: FDA-Public Use
  Company Number: FR-BRISTOL-MYERS SQUIBB COMPANY-20139788

PATIENT
  Age: 44 Year
  Sex: Male
  Weight: 76 kg

DRUGS (2)
  1. SPRYCEL [Suspect]
     Indication: CHRONIC MYELOID LEUKAEMIA
     Dosage: 11JUL2012-29JUL2012=50MG?30JUL2012-02JAN2012=80MG?03JAN2014-CONT.=60MG
     Dates: start: 20111101
  2. NEXIUM [Concomitant]
     Indication: GASTROOESOPHAGEAL REFLUX DISEASE
     Route: 048
     Dates: start: 2013

REACTIONS (1)
  - Lymphoma [Not Recovered/Not Resolved]
